FAERS Safety Report 23351719 (Version 1)
Quarter: 2023Q4

REPORT INFORMATION
  Report Type: Spontaneous
  Country: DE (occurrence: DE)
  Receive Date: 20231229
  Receipt Date: 20231229
  Transmission Date: 20240110
  Serious: Yes (Hospitalization)
  Sender: FDA-Public Use
  Company Number: DE-SAMSUNG BIOEPIS-SB-2023-34297

PATIENT
  Age: 67 Year
  Sex: Female
  Weight: 43 kg

DRUGS (6)
  1. ONTRUZANT [Suspect]
     Active Substance: TRASTUZUMAB-DTTB
     Indication: Oesophageal adenocarcinoma
     Dosage: D1 344 MILLIGRAM
     Route: 042
     Dates: start: 20231208, end: 20231208
  2. PEMBROLIZUMAB [Suspect]
     Active Substance: PEMBROLIZUMAB
     Indication: Oesophageal adenocarcinoma
     Dosage: FLAT DOSE
     Route: 042
     Dates: start: 20231208, end: 20231208
  3. OXALIPLATIN [Suspect]
     Active Substance: OXALIPLATIN
     Indication: Oesophageal adenocarcinoma
     Dosage: 117 MG
     Route: 042
     Dates: start: 20231208, end: 20231208
  4. LEUCOVORIN [Suspect]
     Active Substance: LEUCOVORIN\LEUCOVORIN CALCIUM
     Indication: Oesophageal adenocarcinoma
     Dosage: 276 MG
     Route: 042
     Dates: start: 20231208, end: 20231208
  5. FLUOROURACIL [Suspect]
     Active Substance: FLUOROURACIL
     Indication: Oesophageal adenocarcinoma
     Dosage: 3588 MG
     Route: 042
     Dates: start: 20231208, end: 20231208
  6. DOCETAXEL [Suspect]
     Active Substance: DOCETAXEL\DOCETAXEL ANHYDROUS
     Indication: Oesophageal adenocarcinoma
     Dosage: 69 MG
     Route: 042
     Dates: start: 20231208, end: 20231208

REACTIONS (4)
  - Diarrhoea [Not Recovered/Not Resolved]
  - COVID-19 [Unknown]
  - Exposure to SARS-CoV-2 [Unknown]
  - Product use in unapproved indication [Unknown]

NARRATIVE: CASE EVENT DATE: 20231218
